FAERS Safety Report 8927236 (Version 1)
Quarter: 2012Q4

REPORT INFORMATION
  Report Type: 
  Country: DZ (occurrence: DZ)
  Receive Date: 20121127
  Receipt Date: 20121127
  Transmission Date: 20130627
  Serious: Yes (Other)
  Sender: FDA-Public Use
  Company Number: DZ-ROCHE-1160500

PATIENT
  Age: 60 Year
  Sex: Female

DRUGS (1)
  1. PEGASYS [Suspect]
     Indication: HEPATITIS B
     Route: 058

REACTIONS (1)
  - Hepatic encephalopathy [Not Recovered/Not Resolved]
